FAERS Safety Report 4566361-8 (Version None)
Quarter: 2005Q1

REPORT INFORMATION
  Report Type: 
  Country: None (occurrence: None)
  Receive Date: 20050126
  Receipt Date: 20050126
  Transmission Date: 20050727
  Serious: No
  Sender: FDA-Public Use
  Company Number: None

PATIENT
  Age: 80 Year
  Sex: Male
  Weight: 85.7 kg

DRUGS (1)
  1. DITROPAN [Suspect]

REACTIONS (3)
  - CONSTIPATION [None]
  - DRY MOUTH [None]
  - VISION BLURRED [None]
